FAERS Safety Report 7153397-6 (Version None)
Quarter: 2010Q4

REPORT INFORMATION
  Report Type: 
  Country: None (occurrence: None)
  Receive Date: 20101213
  Receipt Date: 20101201
  Transmission Date: 20110411
  Serious: Yes (Hospitalization)
  Sender: FDA-Public Use
  Company Number: A0765946A

PATIENT
  Age: 55 Year
  Sex: Male
  Weight: 106.8 kg

DRUGS (9)
  1. AVANDIA [Suspect]
     Indication: DIABETES MELLITUS
     Dosage: 4MG PER DAY
     Route: 048
     Dates: start: 20011101, end: 20050101
  2. AVANDAMET [Suspect]
     Indication: DIABETES MELLITUS
     Route: 048
     Dates: start: 20050101, end: 20070801
  3. AVANDARYL [Suspect]
     Indication: DIABETES MELLITUS
     Route: 048
     Dates: start: 20060301, end: 20070301
  4. GLUCOPHAGE [Concomitant]
  5. METFORMIN [Concomitant]
  6. INSULIN [Concomitant]
  7. GLUCOTROL XL [Concomitant]
  8. DIOVAN [Concomitant]
  9. LOTREL [Concomitant]

REACTIONS (1)
  - MYOCARDIAL INFARCTION [None]
